FAERS Safety Report 14688641 (Version 2)
Quarter: 2018Q2

REPORT INFORMATION
  Report Type: Spontaneous
  Country: JP (occurrence: JP)
  Receive Date: 20180328
  Receipt Date: 20180424
  Transmission Date: 20180711
  Serious: Yes (Hospitalization)
  Sender: FDA-Public Use
  Company Number: JP-MYLANLABS-2018M1021440

PATIENT
  Age: 3 Year
  Sex: Male

DRUGS (1)
  1. BOSMIN                             /00003901/ [Suspect]
     Active Substance: EPINEPHRINE
     Indication: ANAPHYLACTIC REACTION
     Route: 030

REACTIONS (1)
  - Electrocardiogram QT prolonged [Recovered/Resolved]
